FAERS Safety Report 18163667 (Version 7)
Quarter: 2020Q4

REPORT INFORMATION
  Report Type: Report from Study
  Country: US (occurrence: US)
  Receive Date: 20200818
  Receipt Date: 20201124
  Transmission Date: 20210113
  Serious: Yes (Hospitalization, Other)
  Sender: FDA-Public Use
  Company Number: US-GLAXOSMITHKLINE-US2020AMR163453

PATIENT
  Sex: Female

DRUGS (3)
  1. NIRAPARIB [Suspect]
     Active Substance: NIRAPARIB
     Indication: FALLOPIAN TUBE CANCER
     Dosage: 300 MG, QD
     Dates: start: 20200807, end: 20200828
  2. VITAMIN C 1000 [Concomitant]
     Indication: PRODUCT USED FOR UNKNOWN INDICATION
     Dosage: UNK
  3. NIRAPARIB [Suspect]
     Active Substance: NIRAPARIB
     Dosage: 100 MG, QD
     Dates: start: 20201019

REACTIONS (16)
  - Neuropathy peripheral [Not Recovered/Not Resolved]
  - Myalgia [Unknown]
  - Platelet count decreased [Unknown]
  - Blood pressure increased [Recovered/Resolved]
  - Decreased appetite [Not Recovered/Not Resolved]
  - Insomnia [Recovered/Resolved]
  - Red blood cell count decreased [Unknown]
  - Bladder discomfort [Unknown]
  - Contusion [Unknown]
  - Nausea [Recovered/Resolved]
  - Macule [Unknown]
  - Fatigue [Recovering/Resolving]
  - Constipation [Recovered/Resolved]
  - Abdominal distension [Unknown]
  - Headache [Recovering/Resolving]
  - White blood cell count decreased [Unknown]
